FAERS Safety Report 4296570-7 (Version None)
Quarter: 2004Q1

REPORT INFORMATION
  Report Type: 
  Country: None (occurrence: None)
  Receive Date: 20040217
  Receipt Date: 20040210
  Transmission Date: 20041129
  Serious: Yes (Hospitalization)
  Sender: FDA-Public Use
  Company Number: US-GLAXOSMITHKLINE-A0497731A

PATIENT
  Age: 63 Year
  Sex: Male

DRUGS (8)
  1. AVANDIA [Suspect]
     Dosage: 4MG PER DAY
     Route: 048
     Dates: end: 20031001
  2. LASIX [Concomitant]
  3. ATENOLOL [Concomitant]
  4. LEXAPRO [Concomitant]
  5. ISOSORBIDE [Concomitant]
  6. CARBATROL [Concomitant]
  7. AMARYL [Concomitant]
  8. GLUCOPHAGE [Concomitant]

REACTIONS (6)
  - APHASIA [None]
  - CARDIAC FAILURE CONGESTIVE [None]
  - CONVULSION [None]
  - DYSPNOEA [None]
  - OEDEMA [None]
  - STARING [None]
